FAERS Safety Report 5119659-9 (Version None)
Quarter: 2006Q4

REPORT INFORMATION
  Report Type: 
  Country: None (occurrence: None)
  Receive Date: 20061003
  Receipt Date: 20060925
  Transmission Date: 20070319
  Serious: Yes (Other)
  Sender: FDA-Public Use
  Company Number: SE-ROCHE-464610

PATIENT
  Age: 16 Year
  Sex: Male
  Weight: 60 kg

DRUGS (2)
  1. DIAZEPAM [Suspect]
     Indication: DRUG USE FOR UNKNOWN INDICATION
     Route: 048
     Dates: start: 20060923, end: 20060923
  2. ROACCUTAN [Concomitant]
     Indication: DRUG USE FOR UNKNOWN INDICATION
     Route: 048
     Dates: start: 20060910, end: 20060924

REACTIONS (4)
  - AMNESIA [None]
  - DISORIENTATION [None]
  - GAIT DISTURBANCE [None]
  - UNEVALUABLE EVENT [None]
